FAERS Safety Report 16656658 (Version 1)
Quarter: 2019Q3

REPORT INFORMATION
  Report Type: Spontaneous
  Country: US (occurrence: US)
  Receive Date: 20190801
  Receipt Date: 20190801
  Transmission Date: 20191004
  Serious: No
  Sender: FDA-Public Use
  Company Number: US-PFIZER INC-2019325936

PATIENT
  Age: 49 Year
  Sex: Female

DRUGS (3)
  1. CHANTIX [Suspect]
     Active Substance: VARENICLINE TARTRATE
     Dosage: 2 DF, (1 PILL IN THE MORNING, AND 1 PILL AT NIGHT)
  2. CHANTIX [Suspect]
     Active Substance: VARENICLINE TARTRATE
     Indication: SMOKING CESSATION THERAPY
     Dosage: 2 DF, (AT ONCE)
     Dates: start: 2015
  3. CHANTIX [Suspect]
     Active Substance: VARENICLINE TARTRATE
     Dosage: 1 DF, (THEN HAD TO TAKE 1 IN THE MORNING)

REACTIONS (3)
  - Dysgeusia [Unknown]
  - Hypoacusis [Unknown]
  - Amnesia [Unknown]
